FAERS Safety Report 5318499-5 (Version None)
Quarter: 2007Q2

REPORT INFORMATION
  Report Type: 
  Country: None (occurrence: None)
  Receive Date: 20070501
  Receipt Date: 20070420
  Transmission Date: 20071010
  Serious: Yes (Hospitalization, Other)
  Sender: FDA-Public Use
  Company Number: 2006RL000258

PATIENT
  Age: 69 Year
  Sex: Male

DRUGS (6)
  1. OMACOR [Suspect]
     Indication: DRUG USE FOR UNKNOWN INDICATION
     Dosage: 1000 MG; QD; PO
     Route: 048
     Dates: start: 20050524, end: 20060701
  2. ATENOLOL [Concomitant]
  3. ASPIRIN [Concomitant]
  4. ENALAPRIL [Concomitant]
  5. GLYBURIDE [Concomitant]
  6. LANTUS [Suspect]
     Indication: DIABETES MELLITUS
     Dosage: SC
     Route: 058
     Dates: start: 20050524

REACTIONS (9)
  - ADRENAL DISORDER [None]
  - ADRENOMEGALY [None]
  - HEPATOMEGALY [None]
  - HYPERGLYCAEMIA [None]
  - LUNG DISORDER [None]
  - PANCREATIC NECROSIS [None]
  - PANCREATITIS ACUTE [None]
  - PLEURAL EFFUSION [None]
  - SPLENOMEGALY [None]
